FAERS Safety Report 5176729-7 (Version None)
Quarter: 2006Q4

REPORT INFORMATION
  Report Type: 
  Country: None (occurrence: None)
  Receive Date: 20061211
  Receipt Date: 20061211
  Transmission Date: 20070319
  Serious: No
  Sender: FDA-Public Use
  Company Number: None

PATIENT
  Sex: Male

DRUGS (2)
  1. ALBUTEROL [Suspect]
     Indication: ASTHMA
     Dosage: INHALE 2 PUFF ORALLY 5 TIMES A DAY
     Route: 055
     Dates: start: 20060818
  2. ALBUTEROL [Suspect]
     Indication: ASTHMA
     Dosage: INHALE 2 PUFF ORALLY 5 TIMES A DAY
     Route: 055
     Dates: start: 20060818

REACTIONS (4)
  - ASTHMA [None]
  - CONDITION AGGRAVATED [None]
  - COUGH [None]
  - DRUG INEFFECTIVE [None]
